FAERS Safety Report 7072683-1 (Version None)
Quarter: 2010Q4

REPORT INFORMATION
  Report Type: 
  Country: None (occurrence: None)
  Receive Date: 20101029
  Receipt Date: 20100301
  Transmission Date: 20110411
  Serious: No
  Sender: FDA-Public Use
  Company Number: A0847359A

PATIENT
  Age: 59 Year
  Sex: Female

DRUGS (4)
  1. ADVAIR DISKUS 100/50 [Suspect]
     Indication: EMPHYSEMA
     Route: 055
     Dates: start: 20091101
  2. SYNTHROID [Concomitant]
  3. SOMA [Concomitant]
  4. ELAVIL [Concomitant]

REACTIONS (1)
  - HYPOAESTHESIA ORAL [None]
